FAERS Safety Report 8901589 (Version 1)
Quarter: 2012Q4

REPORT INFORMATION
  Report Type: Spontaneous
  Country: SA (occurrence: None)
  Receive Date: 20121106
  Receipt Date: 20121106
  Transmission Date: 20130627
  Serious: Yes (Other)
  Sender: FDA-Public Use
  Company Number: IMP_06057_2012

PATIENT
  Age: 44 Year
  Sex: Female

DRUGS (6)
  1. METFORMIN (METFORMIN) [Suspect]
     Indication: DIABETES MELLITUS
  2. PREDNISOLONE [Concomitant]
  3. TRAMADOL (UNKNOWN) [Concomitant]
  4. CALCIUM (UNKNOWN) [Concomitant]
  5. HYDROXYCHLOROQUINE (UNKNOWN) [Concomitant]
  6. ASPIRIN (UNKNOWN) [Concomitant]

REACTIONS (4)
  - Alanine aminotransferase increased [None]
  - Non-alcoholic steatohepatitis [None]
  - Gamma-glutamyltransferase increased [None]
  - Hepatic steatosis [None]
